FAERS Safety Report 10518238 (Version 4)
Quarter: 2014Q4

REPORT INFORMATION
  Report Type: Spontaneous
  Country: JP (occurrence: JP)
  Receive Date: 20141015
  Receipt Date: 20141117
  Transmission Date: 20150528
  Serious: Yes (Hospitalization)
  Sender: FDA-Public Use
  Company Number: JP-PFIZER INC-2014265267

PATIENT
  Age: 77 Year
  Sex: Female

DRUGS (4)
  1. LYRICA [Interacting]
     Active Substance: PREGABALIN
     Indication: HYPOAESTHESIA
     Dosage: 100 MG, DAILY
     Route: 048
  2. LYRICA [Interacting]
     Active Substance: PREGABALIN
     Dosage: 50 MG, 5X/DAY
     Route: 048
     Dates: start: 200901
  3. LYRICA [Suspect]
     Active Substance: PREGABALIN
     Indication: DIABETIC NEUROPATHY
     Dosage: 25 MG, DAILY
     Route: 048
  4. CLARITH [Interacting]
     Active Substance: CLARITHROMYCIN
     Indication: NASOPHARYNGITIS
     Dosage: UNK

REACTIONS (3)
  - Drug effect increased [Unknown]
  - Drug interaction [Unknown]
  - Cerebral infarction [Unknown]

NARRATIVE: CASE EVENT DATE: 20140924
